FAERS Safety Report 7774096-3 (Version None)
Quarter: 2011Q3

REPORT INFORMATION
  Report Type: 
  Country: None (occurrence: None)
  Receive Date: 20110923
  Receipt Date: 20110915
  Transmission Date: 20111222
  Serious: Yes (Other)
  Sender: FDA-Public Use
  Company Number: US-PFIZER INC-2011219886

PATIENT
  Sex: Female

DRUGS (1)
  1. PRISTIQ [Suspect]
     Dosage: UNK
     Route: 048
     Dates: end: 20110901

REACTIONS (2)
  - MAJOR DEPRESSION [None]
  - WITHDRAWAL SYNDROME [None]
